FAERS Safety Report 6917498-7 (Version None)
Quarter: 2010Q3

REPORT INFORMATION
  Report Type: 
  Country: None (occurrence: None)
  Receive Date: 20100805
  Receipt Date: 20100716
  Transmission Date: 20110219
  Serious: Yes (Hospitalization)
  Sender: FDA-Public Use
  Company Number: CV20100369

PATIENT
  Age: 85 Year
  Sex: Female

DRUGS (11)
  1. PROPOFOL [Suspect]
     Indication: INDUCTION OF ANAESTHESIA
     Dosage: 20 MG, INTRAVENOUS
     Route: 042
  2. REMIFENTANIL (REMIFENTANIL) (REMIFENTANIL) [Concomitant]
  3. BUPIVACAINE (BUPIVACAINE) (BUPIVACAINE) [Concomitant]
  4. XYLOCAINE (LIDOCAINE) (LIDOCAINE) [Concomitant]
  5. SPIRONOLACTONE [Concomitant]
  6. LEVOTHYROXINE (LEVOTHYROXINE) (LEVOTHYROXINE) [Concomitant]
  7. CARVEDILOL (CARVEDILOL) (CVARVEDILOL) [Concomitant]
  8. OMEPRAZOL (OMEPRAZOLE) (OMEPRAZOLE) [Concomitant]
  9. SIMVASTATIN [Concomitant]
  10. ZOLPIDEM (ZOLPIDEM) (ZOLPIDEM) [Concomitant]
  11. LISINOPRIL [Concomitant]

REACTIONS (6)
  - BLOOD PRESSURE INCREASED [None]
  - CHEST PAIN [None]
  - LOSS OF CONSCIOUSNESS [None]
  - OXYGEN SATURATION DECREASED [None]
  - PUPILLARY REFLEX IMPAIRED [None]
  - RESPIRATORY ARREST [None]
